FAERS Safety Report 9947401 (Version 1)
Quarter: 2014Q1

REPORT INFORMATION
  Report Type: Report from Study
  Country: US (occurrence: US)
  Receive Date: 20140303
  Receipt Date: 20140303
  Transmission Date: 20141002
  Serious: No
  Sender: FDA-Public Use
  Company Number: US-ABBVIE-13P-163-1061887-00

PATIENT
  Age: 53 Year
  Sex: Female
  Weight: 79.45 kg

DRUGS (23)
  1. HUMIRA [Suspect]
     Indication: RHEUMATOID ARTHRITIS
     Dates: start: 201209
  2. HUMIRA [Suspect]
     Indication: PSORIATIC ARTHROPATHY
  3. KLOR-CON [Concomitant]
     Indication: MINERAL SUPPLEMENTATION
  4. FEREFOLIN [Concomitant]
     Indication: DEMENTIA
  5. B 12 [Concomitant]
     Indication: PRODUCT USED FOR UNKNOWN INDICATION
  6. ADVAIR INHALER [Concomitant]
     Indication: ASTHMA
  7. DEXALYN [Concomitant]
     Indication: GASTROOESOPHAGEAL REFLUX DISEASE
  8. LEVOTHYROXINE [Concomitant]
     Indication: THYROID DISORDER
  9. NIASPAN [Concomitant]
     Indication: BLOOD TRIGLYCERIDES INCREASED
  10. PRAVASTATIN [Concomitant]
     Indication: BLOOD CHOLESTEROL INCREASED
  11. LISINOPRIL [Concomitant]
     Indication: HYPERTENSION
  12. HYDROCHLOROTHIAZIDE [Concomitant]
     Indication: DIURETIC THERAPY
  13. AMLODIPINE [Concomitant]
     Indication: HYPERTENSION
  14. LORTAB [Concomitant]
     Indication: PAIN
  15. FLEXERIL [Concomitant]
     Indication: PRODUCT USED FOR UNKNOWN INDICATION
  16. XANAX [Concomitant]
     Indication: DEPRESSION
  17. XANAX [Concomitant]
     Indication: ANXIETY
  18. CYMBALTA [Concomitant]
     Indication: MYALGIA
  19. CYMBALTA [Concomitant]
     Indication: DEPRESSION
  20. PREDNISONE [Concomitant]
     Indication: PAIN
  21. VENTOLIN INHALER [Concomitant]
     Indication: ASTHMA
  22. FLU VACCINATION [Concomitant]
     Indication: INFLUENZA IMMUNISATION
     Dates: start: 201301, end: 201301
  23. PNUEMONIA VACCINATION [Concomitant]
     Indication: IMMUNISATION
     Dates: start: 201301, end: 201301

REACTIONS (4)
  - Influenza [Recovered/Resolved]
  - Bronchitis [Recovering/Resolving]
  - Sinusitis [Recovering/Resolving]
  - Herpes zoster [Not Recovered/Not Resolved]
